FAERS Safety Report 20163831 (Version 1)
Quarter: 2021Q4

REPORT INFORMATION
  Report Type: Spontaneous
  Country: US (occurrence: US)
  Receive Date: 20211209
  Receipt Date: 20211209
  Transmission Date: 20220303
  Serious: No
  Sender: FDA-Public Use
  Company Number: US-BIOVITRUM-2021US11645

PATIENT
  Sex: Male
  Weight: 8.11 kg

DRUGS (9)
  1. SYNAGIS [Suspect]
     Active Substance: PALIVIZUMAB
     Indication: Tracheostomy
     Dosage: SYNAGIS 50MG/0.5ML VL LIQUID
     Route: 030
     Dates: start: 20210913
  2. FAMOTIDINE [Concomitant]
     Active Substance: FAMOTIDINE
     Dosage: 40MG/5ML SUSP RECON
  3. VITAMIN D3 [Concomitant]
     Active Substance: CHOLECALCIFEROL
     Dosage: 10(400)/ML DROPS
  4. AZITHROMYCIN [Concomitant]
     Active Substance: AZITHROMYCIN
     Dosage: 00 MG/5ML SUSP RECON
  5. GABAPENTIN [Concomitant]
     Active Substance: GABAPENTIN
  6. SYNAGIS [Suspect]
     Active Substance: PALIVIZUMAB
     Indication: Mandibulofacial dysostosis
  7. SYNAGIS [Suspect]
     Active Substance: PALIVIZUMAB
     Indication: Brain injury
  8. SYNAGIS [Suspect]
     Active Substance: PALIVIZUMAB
     Indication: Food protein-induced enterocolitis syndrome
  9. SYNAGIS [Suspect]
     Active Substance: PALIVIZUMAB
     Indication: Cleft palate

REACTIONS (2)
  - Wheezing [Unknown]
  - Adverse drug reaction [Unknown]
